FAERS Safety Report 24895467 (Version 2)
Quarter: 2025Q1

REPORT INFORMATION
  Report Type: Spontaneous
  Country: ES (occurrence: ES)
  Receive Date: 20250128
  Receipt Date: 20250306
  Transmission Date: 20250409
  Serious: Yes (Other)
  Sender: FRESENIUS KABI
  Company Number: ES-HIKMA PHARMACEUTICALS-ES-H14001-25-00418

PATIENT
  Age: 62 Year
  Sex: Female
  Weight: 48.5 kg

DRUGS (32)
  1. PEMETREXED [Suspect]
     Active Substance: PEMETREXED
     Indication: Non-small cell lung cancer
     Dosage: 500 MILLIGRAM, 3W?FOA-INFUSION
     Dates: start: 20241024, end: 20241024
  2. PEMETREXED [Suspect]
     Active Substance: PEMETREXED
     Dosage: 500 MILLIGRAM, 3W?FOA-INFUSION
     Dates: start: 20241115, end: 20241115
  3. PEMETREXED [Suspect]
     Active Substance: PEMETREXED
     Dosage: 500 MILLIGRAM/KILOGRAM, 3W?FOA-INFUSION
     Dates: start: 20241205, end: 20241205
  4. PEMETREXED [Suspect]
     Active Substance: PEMETREXED
     Dosage: 500 MILLIGRAM/KILOGRAM, 3W?FOA-INFUSION
     Dates: start: 20241231, end: 20241231
  5. PEMETREXED [Suspect]
     Active Substance: PEMETREXED
     Dates: start: 20250121, end: 20250121
  6. VUDALIMAB [Suspect]
     Active Substance: VUDALIMAB
     Indication: Non-small cell lung cancer
     Dosage: 500 MILLIGRAM, 3W?FOA-INFUSION
     Dates: start: 20241024, end: 20241024
  7. VUDALIMAB [Suspect]
     Active Substance: VUDALIMAB
     Dosage: 500 MILLIGRAM, 3W?FOA-INFUSION
     Dates: start: 20241115, end: 20241115
  8. VUDALIMAB [Suspect]
     Active Substance: VUDALIMAB
     Dosage: 500 MILLIGRAM, 3W?FOA-INFUSION
     Dates: start: 20241205, end: 20241205
  9. VUDALIMAB [Suspect]
     Active Substance: VUDALIMAB
     Dosage: 500 MILLIGRAM, 3W?FOA-INFUSION
     Dates: start: 20250121, end: 20250121
  10. CARBOPLATIN [Suspect]
     Active Substance: CARBOPLATIN
     Indication: Non-small cell lung cancer
     Dosage: 450 MILLIGRAM, 3W?ROA: INTRAVENOUS (NOT OTHERWISE SPECIFIED) ?DOSAGE FORM: INFUSION
     Dates: start: 20241024, end: 20241024
  11. CARBOPLATIN [Suspect]
     Active Substance: CARBOPLATIN
     Dosage: 405 MILLIGRAM, 3W?ROA: INTRAVENOUS (NOT OTHERWISE SPECIFIED) ?DOSAGE FORM: INFUSION
     Dates: start: 20241115, end: 20241115
  12. CARBOPLATIN [Suspect]
     Active Substance: CARBOPLATIN
     Dosage: 405 MILLIGRAM, 3W?ROA: INTRAVENOUS (NOT OTHERWISE SPECIFIED) ?DOSAGE FORM: INFUSION
     Dates: start: 20241205, end: 20241205
  13. CARBOPLATIN [Suspect]
     Active Substance: CARBOPLATIN
     Dates: start: 20241231, end: 20241231
  14. CYTISINICLINE [Concomitant]
     Active Substance: CYTISINICLINE
     Indication: Product used for unknown indication
     Route: 065
     Dates: start: 2024, end: 20241204
  15. ACETAMINOPHEN [Concomitant]
     Active Substance: ACETAMINOPHEN
     Indication: Product used for unknown indication
     Route: 065
     Dates: start: 2024
  16. CYANOCOBALAMIN\FOLIC ACID [Concomitant]
     Active Substance: CYANOCOBALAMIN\FOLIC ACID
     Indication: Product used for unknown indication
     Route: 065
     Dates: start: 20241001
  17. CYANOCOBALAMIN [Concomitant]
     Active Substance: CYANOCOBALAMIN
     Indication: Product used for unknown indication
     Route: 065
     Dates: start: 20241001
  18. FENTANYL [Concomitant]
     Active Substance: FENTANYL
     Indication: Product used for unknown indication
     Route: 065
     Dates: start: 20241022
  19. LORAZEPAM [Concomitant]
     Active Substance: LORAZEPAM
     Indication: Product used for unknown indication
     Route: 065
     Dates: start: 20241022
  20. IBUPROFEN [Concomitant]
     Active Substance: IBUPROFEN
     Indication: Product used for unknown indication
     Route: 065
     Dates: start: 202406
  21. LYRICA [Concomitant]
     Active Substance: PREGABALIN
     Indication: Product used for unknown indication
     Route: 065
     Dates: start: 20241022, end: 20241121
  22. ABSTRAL [Concomitant]
     Active Substance: FENTANYL CITRATE
     Indication: Product used for unknown indication
     Route: 065
     Dates: start: 20241022
  23. SERTRALINE [Concomitant]
     Active Substance: SERTRALINE HYDROCHLORIDE
     Indication: Product used for unknown indication
     Route: 065
     Dates: start: 20241022
  24. BACTROBAN [Concomitant]
     Active Substance: MUPIROCIN CALCIUM
     Indication: Product used for unknown indication
     Route: 065
     Dates: start: 20241114
  25. OLANZAPINE [Concomitant]
     Active Substance: OLANZAPINE
     Indication: Product used for unknown indication
     Route: 065
     Dates: start: 20241115, end: 20241208
  26. DEXAMETHASONE [Concomitant]
     Active Substance: DEXAMETHASONE
     Indication: Product used for unknown indication
     Route: 065
     Dates: start: 20241115, end: 20241208
  27. OMEPRAZOLE [Concomitant]
     Active Substance: OMEPRAZOLE
     Indication: Product used for unknown indication
     Route: 065
     Dates: start: 20241205
  28. MOVICOL [Concomitant]
     Active Substance: POLYETHYLENE GLYCOL 3350\POTASSIUM CHLORIDE\SODIUM BICARBONATE\SODIUM CHLORIDE
     Indication: Product used for unknown indication
     Route: 065
     Dates: start: 202412
  29. ONDANSETRON [Concomitant]
     Active Substance: ONDANSETRON
     Indication: Product used for unknown indication
     Route: 065
     Dates: start: 20241115, end: 20241205
  30. FOSAPREPITANT [Concomitant]
     Active Substance: FOSAPREPITANT
     Indication: Product used for unknown indication
     Route: 065
     Dates: start: 20241115, end: 20241205
  31. DEXAMETHASONE [Concomitant]
     Active Substance: DEXAMETHASONE
     Indication: Product used for unknown indication
     Route: 065
     Dates: start: 20241115, end: 20241205
  32. HYDROCHLOROTHIAZIDE\LOSARTAN [Concomitant]
     Active Substance: HYDROCHLOROTHIAZIDE\LOSARTAN
     Indication: Product used for unknown indication
     Dates: start: 201305

REACTIONS (5)
  - Autoimmune pericarditis [Recovered/Resolved]
  - Pericardial effusion [Recovering/Resolving]
  - Ascites [Recovering/Resolving]
  - Lymphadenopathy [Unknown]
  - Immunotoxicity [Unknown]

NARRATIVE: CASE EVENT DATE: 20241207
